FAERS Safety Report 6237484-2 (Version None)
Quarter: 2009Q2

REPORT INFORMATION
  Report Type: 
  Country: None (occurrence: None)
  Receive Date: 20090619
  Receipt Date: 20090112
  Transmission Date: 20091009
  Serious: Yes (Other)
  Sender: FDA-Public Use
  Company Number: US-AMGEN-KDL328237

PATIENT
  Sex: Female

DRUGS (4)
  1. ARANESP [Suspect]
     Indication: ANAEMIA
     Route: 065
     Dates: start: 20060701
  2. ZEMPLAR [Concomitant]
  3. COZAAR [Concomitant]
  4. COUMADIN [Concomitant]

REACTIONS (2)
  - ASTHENIA [None]
  - THERAPEUTIC RESPONSE DECREASED [None]
